FAERS Safety Report 22715535 (Version 3)
Quarter: 2024Q1

REPORT INFORMATION
  Report Type: Spontaneous
  Country: IL (occurrence: IL)
  Receive Date: 20230718
  Receipt Date: 20240216
  Transmission Date: 20240410
  Serious: Yes (Other)
  Sender: FDA-Public Use
  Company Number: IL-ALXN-A202309092

PATIENT
  Age: 43 Year
  Sex: Female

DRUGS (2)
  1. ULTOMIRIS [Suspect]
     Active Substance: RAVULIZUMAB-CWVZ
     Indication: Paroxysmal nocturnal haemoglobinuria
     Dosage: UNK
     Route: 065
     Dates: start: 202101
  2. ULTOMIRIS [Suspect]
     Active Substance: RAVULIZUMAB-CWVZ
     Dosage: UNK, EVERY 7 WEEKS
     Route: 065
     Dates: end: 20231128

REACTIONS (1)
  - Extravascular haemolysis [Unknown]

NARRATIVE: CASE EVENT DATE: 20230101
